FAERS Safety Report 6031736-7 (Version None)
Quarter: 2009Q1

REPORT INFORMATION
  Report Type: 
  Country: None (occurrence: None)
  Receive Date: 20090107
  Receipt Date: 20090107
  Transmission Date: 20090719
  Serious: Yes (Hospitalization)
  Sender: FDA-Public Use
  Company Number: None

PATIENT
  Age: 73 Year
  Sex: Male
  Weight: 80.7403 kg

DRUGS (1)
  1. PLAVIX [Suspect]
     Dosage: 1 PER DAY 4 DAYS
     Dates: start: 20081116, end: 20081101

REACTIONS (2)
  - GASTRIC ULCER [None]
  - HAEMORRHAGE [None]
